FAERS Safety Report 18148217 (Version 1)
Quarter: 2020Q3

REPORT INFORMATION
  Report Type: Spontaneous
  Country: CA (occurrence: CA)
  Receive Date: 20200814
  Receipt Date: 20200814
  Transmission Date: 20201103
  Serious: Yes (Other)
  Sender: FDA-Public Use
  Company Number: CA-TEVA-2020-CA-1813380

PATIENT
  Age: 43 Year
  Sex: Male

DRUGS (2)
  1. EZETIMIBE. [Suspect]
     Active Substance: EZETIMIBE
     Indication: DYSLIPIDAEMIA
     Dosage: 10 MILLIGRAM DAILY;
     Route: 048
  2. OXYCODONE [Concomitant]
     Active Substance: OXYCODONE

REACTIONS (1)
  - Erectile dysfunction [Recovered/Resolved]
